FAERS Safety Report 8941913 (Version 1)
Quarter: 2012Q4

REPORT INFORMATION
  Report Type: 
  Country: US (occurrence: US)
  Receive Date: 20121203
  Receipt Date: 20121203
  Transmission Date: 20130627
  Serious: Yes (Congenital Anomaly, Other)
  Sender: FDA-Public Use
  Company Number: US-PFIZER INC-2012299298

PATIENT
  Age: 1 Day
  Sex: Female

DRUGS (2)
  1. ZOLOFT [Suspect]
     Dosage: 50 mg, UNK
     Route: 064
     Dates: start: 19990322
  2. PRENATAL VITAMINS [Concomitant]
     Dosage: UNK
     Route: 064

REACTIONS (3)
  - Maternal exposure timing unspecified [Unknown]
  - Ventricular septal defect [Unknown]
  - Atrial septal defect [Unknown]
